FAERS Safety Report 16805063 (Version 2)
Quarter: 2019Q4

REPORT INFORMATION
  Report Type: Spontaneous
  Country: JP (occurrence: JP)
  Receive Date: 20190913
  Receipt Date: 20191008
  Transmission Date: 20200122
  Serious: Yes (Death, Other)
  Sender: FDA-Public Use
  Company Number: JP-AMGEN-JPNSP2019150153

PATIENT
  Age: 7 Decade
  Sex: Male

DRUGS (1)
  1. VECTIBIX [Suspect]
     Active Substance: PANITUMUMAB
     Indication: COLON CANCER
     Dosage: UNK
     Route: 065
     Dates: start: 201809

REACTIONS (2)
  - Disseminated intravascular coagulation [Fatal]
  - Metastases to spine [Fatal]

NARRATIVE: CASE EVENT DATE: 201907
